FAERS Safety Report 5270420-4 (Version None)
Quarter: 2007Q1

REPORT INFORMATION
  Report Type: 
  Country: None (occurrence: None)
  Receive Date: 20070314
  Receipt Date: 20070309
  Transmission Date: 20070707
  Serious: Yes (Death)
  Sender: FDA-Public Use
  Company Number: 2007-00642

PATIENT
  Age: 41 Year
  Sex: Male
  Weight: 66 kg

DRUGS (1)
  1. VELCADE [Suspect]
     Indication: T-CELL LYMPHOMA
     Dosage: INTRAVENOUS
     Route: 042

REACTIONS (1)
  - DEATH [None]
